FAERS Safety Report 9085288 (Version 1)
Quarter: 2013Q1

REPORT INFORMATION
  Report Type: Report from Study
  Country: US (occurrence: US)
  Receive Date: 20130131
  Receipt Date: 20130131
  Transmission Date: 20140127
  Serious: No
  Sender: FDA-Public Use
  Company Number: US-ABBOTT-12P-163-1001113-00

PATIENT
  Age: 26 Year
  Sex: Male

DRUGS (10)
  1. HUMIRA [Suspect]
     Indication: CROHN^S DISEASE
     Route: 058
     Dates: start: 20120706
  2. PAXIL [Concomitant]
     Indication: DEPRESSION
     Dosage: DAILY
     Route: 048
  3. BUSPAR [Concomitant]
     Indication: PRODUCT USED FOR UNKNOWN INDICATION
     Dosage: DAILY
     Route: 048
  4. CLONAZEPAM [Concomitant]
     Indication: ANXIETY
     Route: 048
  5. OXYCONTIN [Concomitant]
     Indication: PAIN
     Route: 048
  6. OXYCODONE [Concomitant]
     Indication: PAIN
     Dosage: UP TO 4 TIMES DAILY
     Route: 048
  7. SOMA [Concomitant]
     Indication: MUSCLE RELAXANT THERAPY
     Dosage: UP TO 3 TIMES DAILY
     Route: 054
  8. AMBIEN [Concomitant]
     Indication: INSOMNIA
     Dosage: AT BEDTIME
     Route: 048
  9. VENTILIN INHALER [Concomitant]
     Indication: ASTHMA
  10. ADVAIR [Concomitant]
     Indication: ASTHMA
     Dosage: DAILY

REACTIONS (6)
  - Crohn^s disease [Not Recovered/Not Resolved]
  - Tooth extraction [Not Recovered/Not Resolved]
  - Alveolar osteitis [Not Recovered/Not Resolved]
  - Impaired healing [Not Recovered/Not Resolved]
  - Tooth infection [Not Recovered/Not Resolved]
  - Pyrexia [Unknown]
